FAERS Safety Report 6245478-6 (Version None)
Quarter: 2009Q2

REPORT INFORMATION
  Report Type: 
  Country: None (occurrence: None)
  Receive Date: 20090625
  Receipt Date: 20090619
  Transmission Date: 20091009
  Serious: Yes (Death, Life-Threatening, Hospitalization, Other)
  Sender: FDA-Public Use
  Company Number: PHHO2009BR07732

PATIENT
  Sex: Male

DRUGS (22)
  1. CYCLOSPORINE [Suspect]
     Indication: RENAL TRANSPLANT
     Dosage: 400 MG/DAY
     Route: 048
     Dates: start: 20030509, end: 20030512
  2. CYCLOSPORINE [Suspect]
     Dosage: 325 MG, BID
     Route: 048
     Dates: start: 20030513, end: 20030716
  3. MYCOPHENOLATE MOFETIL [Suspect]
     Dosage: VARYING BETWEEN 500MG/DAY AND 500MG THRRE PER TWO DAYS
     Route: 048
     Dates: start: 20030509, end: 20030512
  4. PREDNISONE [Suspect]
     Dosage: 60 MG, QD
     Route: 048
     Dates: start: 20030512, end: 20030725
  5. PREDNISONE [Suspect]
     Dosage: 20 MG, QD
     Dates: start: 20030726, end: 20030728
  6. METHYLPREDNISOLONE [Suspect]
     Dosage: 500 MG, QD
     Route: 048
     Dates: start: 20030509, end: 20030512
  7. METHYLPREDNISOLONE [Suspect]
     Dosage: NO TREATMENT
     Dates: start: 20030513, end: 20030515
  8. METHYLPREDNISOLONE [Suspect]
     Dosage: 500 MG, QD
     Dates: start: 20030516, end: 20030521
  9. METHYLPREDNISOLONE [Suspect]
     Dosage: NO TREATMENT
     Dates: start: 20030522, end: 20030613
  10. METHYLPREDNISOLONE [Suspect]
     Dosage: 500 MG, QD
     Route: 048
     Dates: start: 20030614, end: 20030619
  11. METHYLPREDNISOLONE [Suspect]
     Dosage: NO TREATMENT
     Dates: start: 20030620
  12. CIPROFLOXACIN [Concomitant]
  13. CEFEPIME [Concomitant]
  14. FUROSEMIDE INTENSOL [Concomitant]
  15. GANCICLOVIR [Concomitant]
  16. HYDRALAZINE HCL [Concomitant]
  17. IMIPENEM [Concomitant]
  18. METRONIDAZOLE [Concomitant]
  19. OMEPRAZOLE [Concomitant]
  20. PROPRANOLOL [Concomitant]
  21. RANITIDINE [Concomitant]
  22. SULFAMETHOXAZOLE AND TRIMETHOPRIM [Concomitant]

REACTIONS (15)
  - ANAPHYLACTOID REACTION [None]
  - ANGIOEDEMA [None]
  - CHOLECYSTECTOMY [None]
  - CHOLECYSTITIS [None]
  - CYTOMEGALOVIRUS INFECTION [None]
  - INCISIONAL HERNIA [None]
  - INCISIONAL HERNIA REPAIR [None]
  - JAUNDICE [None]
  - MECHANICAL VENTILATION [None]
  - PANCYTOPENIA [None]
  - PYREXIA [None]
  - RESPIRATORY FAILURE [None]
  - SEPSIS [None]
  - THROMBOCYTOPENIA [None]
  - TRACHEOSTOMY [None]
